FAERS Safety Report 16351994 (Version 1)
Quarter: 2019Q2

REPORT INFORMATION
  Report Type: Spontaneous
  Country: GB (occurrence: GB)
  Receive Date: 20190524
  Receipt Date: 20190524
  Transmission Date: 20190711
  Serious: Yes (Other)
  Sender: FDA-Public Use
  Company Number: GB-ACCORD-128930

PATIENT
  Age: 69 Year
  Sex: Male

DRUGS (6)
  1. CARBOMER [Concomitant]
     Active Substance: CARBOMER
  2. AMITRIPTYLINE [Suspect]
     Active Substance: AMITRIPTYLINE
     Indication: MUSCULOSKELETAL STIFFNESS
     Dosage: THERAPY END DATE- 15-MAR-2019
     Route: 048
     Dates: start: 20180301
  3. DICLOFENAC [Concomitant]
     Active Substance: DICLOFENAC
     Dosage: ALTERNATIVE TO AMITRIPTYLINE AND NOT TAKEN AT THE SAME TIME.
  4. DOUBLEBASE [Concomitant]
     Active Substance: ISOPROPYL MYRISTATE\PARAFFIN
  5. LANSOPRAZOLE. [Concomitant]
     Active Substance: LANSOPRAZOLE
  6. CINNARIZINE [Concomitant]
     Active Substance: CINNARIZINE

REACTIONS (2)
  - Gingival pain [Unknown]
  - Mouth ulceration [Recovered/Resolved]

NARRATIVE: CASE EVENT DATE: 20181001
